FAERS Safety Report 6006774-0 (Version None)
Quarter: 2008Q4

REPORT INFORMATION
  Report Type: 
  Country: None (occurrence: None)
  Receive Date: 20081217
  Receipt Date: 20081210
  Transmission Date: 20090506
  Serious: Yes (Hospitalization)
  Sender: FDA-Public Use
  Company Number: KR-TEVA-182395ISR

PATIENT
  Sex: Male
  Weight: 56 kg

DRUGS (9)
  1. FLUOROURACIL [Suspect]
     Indication: COLORECTAL CANCER
     Route: 040
     Dates: start: 20080821
  2. FLUOROURACIL [Suspect]
     Route: 041
     Dates: start: 20080821
  3. IRINOTECAN HCL [Suspect]
     Indication: COLORECTAL CANCER
     Route: 042
     Dates: start: 20080821
  4. AG-013, 736 [Suspect]
     Indication: COLORECTAL CANCER
     Route: 048
     Dates: start: 20080821
  5. FOLINIC ACID [Suspect]
     Indication: COLORECTAL CANCER
     Route: 042
     Dates: start: 20080821
  6. ALUMINIUM MAGNESIUM SILICATE [Concomitant]
     Indication: DIARRHOEA
     Dates: start: 20080903, end: 20080909
  7. MEGESTROL ACETATE [Concomitant]
     Indication: ANOREXIA
     Dates: start: 20080903, end: 20080909
  8. MOSAPRIDE CITRATE [Concomitant]
     Indication: DYSPEPSIA
     Dates: start: 20080910, end: 20080917
  9. TEPRENONE [Concomitant]
     Indication: GASTRIC DISORDER
     Dates: start: 20080910, end: 20080917

REACTIONS (1)
  - HYPERBILIRUBINAEMIA [None]
